FAERS Safety Report 9751895 (Version 2)
Quarter: 2013Q4

REPORT INFORMATION
  Report Type: Spontaneous
  Country: US (occurrence: US)
  Receive Date: 20131213
  Receipt Date: 20131213
  Transmission Date: 20140711
  Serious: Yes (Other)
  Sender: FDA-Public Use
  Company Number: US-ROCHE-1285297

PATIENT
  Sex: Male

DRUGS (3)
  1. PEGASYS [Suspect]
     Indication: CHRONIC HEPATITIS C
     Route: 058
     Dates: start: 20130916
  2. COPEGUS [Suspect]
     Indication: CHRONIC HEPATITIS C
     Dosage: DIVIDED DOSES 600/600
     Route: 048
     Dates: start: 20130916
  3. LASIX [Concomitant]
     Route: 065

REACTIONS (21)
  - Terminal state [Unknown]
  - Myalgia [Unknown]
  - Anxiety [Unknown]
  - Asthenia [Unknown]
  - Parosmia [Unknown]
  - Insomnia [Unknown]
  - Cough [Unknown]
  - Thirst [Unknown]
  - Tinnitus [Unknown]
  - Vertigo positional [Unknown]
  - Presyncope [Unknown]
  - Productive cough [Unknown]
  - Bronchial secretion retention [Unknown]
  - Dyspnoea [Unknown]
  - Mood swings [Unknown]
  - Irritability [Unknown]
  - Feeling abnormal [Unknown]
  - Fatigue [Unknown]
  - Visual impairment [Unknown]
  - Dizziness [Unknown]
  - Panic attack [Unknown]
